FAERS Safety Report 4909610-6 (Version None)
Quarter: 2006Q1

REPORT INFORMATION
  Report Type: 
  Country: None (occurrence: None)
  Receive Date: 20060213
  Receipt Date: 20060209
  Transmission Date: 20060701
  Serious: Yes (Hospitalization)
  Sender: FDA-Public Use
  Company Number: FR-MERCK-0602FRA00028

PATIENT
  Age: 72 Year
  Sex: Male

DRUGS (1)
  1. COZAAR [Suspect]
     Indication: HYPERTENSION
     Route: 048
     Dates: end: 20051228

REACTIONS (3)
  - DEHYDRATION [None]
  - HYPERTENSIVE CRISIS [None]
  - RENAL FAILURE ACUTE [None]
